FAERS Safety Report 9336986 (Version 1)
Quarter: 2013Q2

REPORT INFORMATION
  Report Type: Report from Study
  Country: SG (occurrence: SG)
  Receive Date: 20130607
  Receipt Date: 20130607
  Transmission Date: 20140414
  Serious: Yes (Hospitalization)
  Sender: FDA-Public Use
  Company Number: PHHO2013SG007316

PATIENT
  Age: 57 Year
  Sex: Female
  Weight: 51 kg

DRUGS (2)
  1. GLIVEC [Suspect]
     Indication: CHRONIC MYELOID LEUKAEMIA
     Dosage: 400 MG, QD
     Route: 048
     Dates: start: 20121221
  2. LORAZEPAM [Concomitant]
     Dosage: UNK
     Dates: start: 20130411

REACTIONS (1)
  - Local swelling [Recovering/Resolving]
